FAERS Safety Report 14378114 (Version 1)
Quarter: 2018Q1

REPORT INFORMATION
  Report Type: Spontaneous
  Country: CL (occurrence: CL)
  Receive Date: 20180111
  Receipt Date: 20180111
  Transmission Date: 20180509
  Serious: Yes (Other)
  Sender: FDA-Public Use
  Company Number: CL-BIOMARINAP-CL-2017-116589

PATIENT
  Age: 30 Year
  Sex: Female
  Weight: 21.4 kg

DRUGS (1)
  1. VIMIZIM [Suspect]
     Active Substance: ELOSULFASE ALFA
     Indication: MUCOPOLYSACCHARIDOSIS IV
     Dosage: 40 MG, QW
     Route: 042
     Dates: start: 20150505

REACTIONS (6)
  - Tremor [Unknown]
  - Moaning [Unknown]
  - Tachycardia [Unknown]
  - Palpitations [Unknown]
  - Hyperhidrosis [Unknown]
  - Hypoglycaemia [Recovered/Resolved]

NARRATIVE: CASE EVENT DATE: 20171225
